FAERS Safety Report 10873703 (Version 1)
Quarter: 2015Q1

REPORT INFORMATION
  Report Type: Spontaneous
  Country: US (occurrence: None)
  Receive Date: 20150223
  Receipt Date: 20150223
  Transmission Date: 20150721
  Serious: Yes (Other)
  Sender: FDA-Public Use
  Company Number: None

PATIENT
  Age: 34 Year
  Sex: Male

DRUGS (1)
  1. HUMIRA [Suspect]
     Active Substance: ADALIMUMAB
     Indication: CROHN^S DISEASE
     Dosage: HUMIRA EVERY OTHER WEEK SUBCUTANEOUS
     Route: 058
     Dates: start: 20110926, end: 20150220

REACTIONS (1)
  - Epilepsy [None]

NARRATIVE: CASE EVENT DATE: 20150216
